FAERS Safety Report 9812329 (Version 1)
Quarter: 2014Q1

REPORT INFORMATION
  Report Type: Report from Study
  Country: US (occurrence: US)
  Receive Date: 20140113
  Receipt Date: 20140113
  Transmission Date: 20141002
  Serious: Yes (Death)
  Sender: FDA-Public Use
  Company Number: US-ROCHE-1331962

PATIENT
  Sex: Female
  Weight: 66.74 kg

DRUGS (6)
  1. AVASTIN [Suspect]
     Indication: MALIGNANT PERITONEAL NEOPLASM
     Route: 042
     Dates: start: 20110505
  2. AVASTIN [Suspect]
     Route: 042
     Dates: start: 20110714
  3. TAXOL [Concomitant]
     Dosage: IVPB
     Route: 042
  4. DECADRON [Concomitant]
     Route: 040
  5. BENADRYL (UNITED STATES) [Concomitant]
     Route: 040
  6. PEPCID [Concomitant]
     Route: 040

REACTIONS (1)
  - Death [Fatal]
